FAERS Safety Report 19120746 (Version 1)
Quarter: 2021Q2

REPORT INFORMATION
  Report Type: Spontaneous
  Country: US (occurrence: US)
  Receive Date: 20210411
  Receipt Date: 20210411
  Transmission Date: 20210717
  Serious: Yes (Other)
  Sender: FDA-Public Use
  Company Number: None

PATIENT
  Age: 11 Year
  Sex: Male
  Weight: 39.15 kg

DRUGS (3)
  1. FLUOXETINE [Concomitant]
     Active Substance: FLUOXETINE HYDROCHLORIDE
  2. METHYLPHENIDATE 27 MG ER OSM TABLETS [Suspect]
     Active Substance: METHYLPHENIDATE
     Indication: ATTENTION DEFICIT HYPERACTIVITY DISORDER
     Dosage: QUANTITY:30 TABLET(S);?
     Route: 048
     Dates: start: 20210317, end: 20210409
  3. CLONIDINE. [Concomitant]
     Active Substance: CLONIDINE

REACTIONS (6)
  - Abnormal behaviour [None]
  - Product substitution issue [None]
  - Intentional self-injury [None]
  - Thinking abnormal [None]
  - Drug ineffective [None]
  - Self-injurious ideation [None]

NARRATIVE: CASE EVENT DATE: 20210323
